FAERS Safety Report 7028329-1 (Version None)
Quarter: 2010Q4

REPORT INFORMATION
  Report Type: 
  Country: None (occurrence: None)
  Receive Date: 20101005
  Receipt Date: 20100929
  Transmission Date: 20110411
  Serious: Yes (Other)
  Sender: FDA-Public Use
  Company Number: US-JNJCH-2010022402

PATIENT
  Age: 6 Year
  Sex: Female
  Weight: 28.1 kg

DRUGS (1)
  1. CHILDREN'S BENADRYL ALLERGY [Suspect]
     Indication: NASAL CONGESTION
     Dosage: TEXT:1.5 TEASPOONS ONCE
     Route: 048
     Dates: start: 20100928, end: 20100928

REACTIONS (4)
  - HALLUCINATION [None]
  - HYPERHIDROSIS [None]
  - NIGHTMARE [None]
  - OFF LABEL USE [None]
